FAERS Safety Report 8796564 (Version 1)
Quarter: 2012Q4

REPORT INFORMATION
  Report Type: 
  Country: BR (occurrence: BR)
  Receive Date: 20120920
  Receipt Date: 20120920
  Transmission Date: 20130627
  Serious: Yes (Hospitalization, Other)
  Sender: FDA-Public Use
  Company Number: PHHY2012BR079707

PATIENT
  Sex: Male
  Weight: 87 kg

DRUGS (7)
  1. DIOVAN HCT [Suspect]
     Indication: HYPERTENSION
     Dosage: 1 tablet (320/25 mg), daily
  2. NPH INSULIN [Concomitant]
     Dosage: 25 mg day and 15 mg night
  3. CARVEDILOL [Concomitant]
     Indication: CARDIAC DISORDER
     Dosage: 2 tablets, daily
     Dates: start: 2007
  4. SPIRONOLACTONE [Concomitant]
     Indication: STENT PLACEMENT
     Dosage: 1 tablet, daily
     Route: 048
     Dates: start: 2009
  5. PANTOPRAZOLE [Concomitant]
     Indication: ABDOMINAL DISCOMFORT
     Dosage: 1 tablet, daily
     Route: 048
  6. ATENSINA [Concomitant]
     Indication: HYPERTENSION
     Dosage: 1 tablet, daily
     Dates: start: 2009
  7. CLONAZEPAM [Concomitant]
     Indication: SLEEP DISORDER
     Dosage: 1 tablet, daily
     Route: 048
     Dates: start: 2010

REACTIONS (6)
  - Limb injury [Not Recovered/Not Resolved]
  - Erysipelas [Not Recovered/Not Resolved]
  - Optic nerve infarction [Not Recovered/Not Resolved]
  - Blindness [Not Recovered/Not Resolved]
  - Toe amputation [None]
  - Limb injury [None]
